FAERS Safety Report 4336241-1 (Version None)
Quarter: 2004Q2

REPORT INFORMATION
  Report Type: 
  Country: None (occurrence: None)
  Receive Date: 20040407
  Receipt Date: 20040324
  Transmission Date: 20050107
  Serious: Yes (Life-Threatening, Other)
  Sender: FDA-Public Use
  Company Number: JP_030400632

PATIENT
  Age: 73 Year
  Sex: Male
  Weight: 66 kg

DRUGS (2)
  1. GEMCITABINE HYDROCHLORIDE-IV (GEMCITABINE) [Suspect]
     Indication: NON-SMALL CELL LUNG CANCER
     Dosage: 1200 MG/OTHER
     Dates: start: 20010302, end: 20010420
  2. VINORELBINE TARTRATE [Concomitant]

REACTIONS (8)
  - CONDITION AGGRAVATED [None]
  - FATIGUE [None]
  - LYMPHADENOPATHY [None]
  - NEOPLASM [None]
  - NEUTROPHIL COUNT DECREASED [None]
  - PULMONARY FIBROSIS [None]
  - PYREXIA [None]
  - WHITE BLOOD CELL COUNT DECREASED [None]
